FAERS Safety Report 10015080 (Version 1)
Quarter: 2014Q1

REPORT INFORMATION
  Report Type: Spontaneous
  Country: JP (occurrence: JP)
  Receive Date: 20140317
  Receipt Date: 20140317
  Transmission Date: 20141002
  Serious: Yes (Death, Hospitalization, Other)
  Sender: FDA-Public Use
  Company Number: JP-JNJFOC-20140308060

PATIENT
  Age: 35 Year
  Sex: Male

DRUGS (7)
  1. ITRACONAZOLE [Suspect]
     Indication: ASPERGILLUS INFECTION
     Route: 048
  2. MICAFUNGIN [Suspect]
     Indication: ASPERGILLUS INFECTION
     Route: 065
  3. VORICONAZOLE [Suspect]
     Indication: INFECTION
     Route: 048
  4. AMPHOTERICIN B [Suspect]
     Indication: INFECTION
     Route: 048
  5. AMPHOTERICIN B [Suspect]
     Indication: INFECTION
     Route: 048
  6. VORICONAZOLE [Suspect]
     Indication: INFECTION
     Dosage: 6 MG/KG ONE DAY AND AS A LOADING DOSE 4 MG/KG DAILY
     Route: 042
  7. VORICONAZOLE [Suspect]
     Indication: INFECTION
     Dosage: 6 MG/KG ONE DAY AND AS A LOADING DOSE 4 MG/KG DAILY
     Route: 042

REACTIONS (3)
  - Endocarditis [Fatal]
  - Meningitis [Fatal]
  - Drug ineffective [Unknown]
